FAERS Safety Report 6961720-8 (Version None)
Quarter: 2010Q3

REPORT INFORMATION
  Report Type: 
  Country: None (occurrence: None)
  Receive Date: 20100901
  Receipt Date: 20100803
  Transmission Date: 20110219
  Serious: Yes (Hospitalization, Other)
  Sender: FDA-Public Use
  Company Number: PHEH2007US04226

PATIENT
  Sex: Female
  Weight: 65.77 kg

DRUGS (28)
  1. AREDIA [Suspect]
     Indication: BREAST CANCER
  2. ZOMETA [Suspect]
     Indication: BREAST CANCER
  3. CLARITIN [Concomitant]
  4. ZYRTEC [Concomitant]
  5. XANAX [Concomitant]
  6. PAXIL [Concomitant]
  7. LASIX [Concomitant]
  8. LANOXIN [Concomitant]
  9. ADVAIR DISKUS 100/50 [Concomitant]
  10. AROMASIN [Concomitant]
  11. COUMADIN [Concomitant]
  12. AMBIEN [Concomitant]
  13. MAXAIR [Concomitant]
  14. DECADRON [Concomitant]
  15. SYMBICORT [Concomitant]
  16. TYLENOL-500 [Concomitant]
  17. VICODIN [Concomitant]
  18. XOPENEX [Concomitant]
  19. NAVELBINE [Concomitant]
  20. SPIRIVA [Concomitant]
  21. LUNESTA [Concomitant]
  22. BENADRYL ^PFIZER WARNER-LAMBERT^ [Concomitant]
  23. LYRICA [Concomitant]
  24. TYKERB [Concomitant]
  25. ZOFRAN [Concomitant]
  26. GENTAMICIN [Concomitant]
  27. CLINDAMYCIN [Concomitant]
  28. MIRAPEX [Concomitant]

REACTIONS (80)
  - ABDOMINAL DISTENSION [None]
  - ALANINE AMINOTRANSFERASE INCREASED [None]
  - ANAEMIA [None]
  - ANXIETY [None]
  - ARTHRALGIA [None]
  - ASPARTATE AMINOTRANSFERASE INCREASED [None]
  - ASTHENIA [None]
  - ASTHMA [None]
  - ATELECTASIS [None]
  - ATROPHIC VULVOVAGINITIS [None]
  - BLOOD ALKALINE PHOSPHATASE INCREASED [None]
  - BLOOD LACTATE DEHYDROGENASE INCREASED [None]
  - BLOOD URINE PRESENT [None]
  - BONE DENSITY DECREASED [None]
  - BONE DISORDER [None]
  - BONE PAIN [None]
  - CENTRAL VENOUS CATHETERISATION [None]
  - CHEST PAIN [None]
  - CONSTIPATION [None]
  - DECREASED INTEREST [None]
  - DEFORMITY [None]
  - DEPRESSION [None]
  - DIZZINESS [None]
  - DYSPEPSIA [None]
  - DYSPHONIA [None]
  - DYSPNOEA [None]
  - EMOTIONAL DISTRESS [None]
  - EXOSTOSIS [None]
  - FATIGUE [None]
  - GINGIVAL INFECTION [None]
  - HEADACHE [None]
  - HEART RATE INCREASED [None]
  - HYPERSOMNIA [None]
  - HYPOAESTHESIA [None]
  - HYPOPHAGIA [None]
  - IMPAIRED HEALING [None]
  - INFECTION [None]
  - INSOMNIA [None]
  - INTERMITTENT CLAUDICATION [None]
  - JAW OPERATION [None]
  - JOINT STIFFNESS [None]
  - LACRIMATION INCREASED [None]
  - LUNG HYPERINFLATION [None]
  - LUNG INFILTRATION [None]
  - MALAISE [None]
  - MASS [None]
  - METASTASES TO BONE [None]
  - METASTASES TO HEART [None]
  - METASTASES TO PLEURA [None]
  - METASTASES TO SPINE [None]
  - MITRAL VALVE INCOMPETENCE [None]
  - NAUSEA [None]
  - NECK PAIN [None]
  - NEUROPATHY PERIPHERAL [None]
  - NEUTROPENIA [None]
  - OEDEMA PERIPHERAL [None]
  - ORTHOPNOEA [None]
  - OSTEITIS [None]
  - OSTEOMYELITIS [None]
  - OSTEONECROSIS OF JAW [None]
  - PAIN [None]
  - PAIN IN JAW [None]
  - PANCYTOPENIA [None]
  - PARAESTHESIA [None]
  - PERICARDIAL EFFUSION [None]
  - PERIODONTAL OPERATION [None]
  - PLEURAL EFFUSION [None]
  - PRIMARY SEQUESTRUM [None]
  - PYREXIA [None]
  - RASH ERYTHEMATOUS [None]
  - SENSATION OF HEAVINESS [None]
  - SINUS CONGESTION [None]
  - SLEEP APNOEA SYNDROME [None]
  - SNORING [None]
  - STRESS [None]
  - SYNCOPE [None]
  - TACHYCARDIA [None]
  - TRICUSPID VALVE INCOMPETENCE [None]
  - VISION BLURRED [None]
  - WEIGHT DECREASED [None]
